FAERS Safety Report 17279976 (Version 1)
Quarter: 2020Q1

REPORT INFORMATION
  Report Type: Spontaneous
  Country: US (occurrence: US)
  Receive Date: 20200117
  Receipt Date: 20200117
  Transmission Date: 20200409
  Serious: No
  Sender: FDA-Public Use
  Company Number: US-DRREDDYS-USA/USA/20/0118405

PATIENT
  Sex: Female

DRUGS (1)
  1. ESZOPICLONE. [Suspect]
     Active Substance: ESZOPICLONE
     Indication: INSOMNIA
     Dosage: TOOK 4 MG OF ESZOICLONE
     Route: 048

REACTIONS (5)
  - Product substitution issue [Unknown]
  - Product quality issue [Unknown]
  - Somnolence [Unknown]
  - Extra dose administered [Unknown]
  - Drug ineffective [Unknown]
